FAERS Safety Report 4294248-7 (Version None)
Quarter: 2004Q1

REPORT INFORMATION
  Report Type: 
  Country: None (occurrence: None)
  Receive Date: 20040211
  Receipt Date: 20030401
  Transmission Date: 20041129
  Serious: No
  Sender: FDA-Public Use
  Company Number: US-BRISTOL-MYERS SQUIBB COMPANY-12227732

PATIENT
  Age: 29 Year
  Sex: Female
  Weight: 53 kg

DRUGS (1)
  1. ULTRAVATE [Suspect]
     Indication: PRURITUS
     Route: 061
     Dates: start: 20030321, end: 20030331

REACTIONS (1)
  - ERYTHEMA [None]
